FAERS Safety Report 20229285 (Version 1)
Quarter: 2021Q4

REPORT INFORMATION
  Report Type: Report from Study
  Country: US (occurrence: US)
  Receive Date: 20211225
  Receipt Date: 20211225
  Transmission Date: 20220303
  Serious: Yes (Other)
  Sender: FDA-Public Use
  Company Number: US-TEVA-2021-US-1991458

PATIENT
  Age: 81 Year
  Sex: Female

DRUGS (4)
  1. IMATINIB [Suspect]
     Active Substance: IMATINIB
     Indication: Chronic myeloid leukaemia
     Route: 065
  2. NILOTINIB [Concomitant]
     Active Substance: NILOTINIB
     Indication: Chronic myeloid leukaemia
     Route: 065
  3. ANAGRELIDE [Concomitant]
     Active Substance: ANAGRELIDE
     Indication: Chronic myeloid leukaemia
     Route: 065
  4. HYDROXYUREA [Concomitant]
     Active Substance: HYDROXYUREA
     Indication: Chronic myeloid leukaemia
     Route: 065

REACTIONS (1)
  - Drug resistance [Unknown]
